FAERS Safety Report 9022592 (Version 1)
Quarter: 2013Q1

REPORT INFORMATION
  Report Type: Spontaneous
  Country: US (occurrence: US)
  Receive Date: 20130118
  Receipt Date: 20130118
  Transmission Date: 20140127
  Serious: No
  Sender: FDA-Public Use
  Company Number: US-GLAXOSMITHKLINE-A0993119A

PATIENT
  Age: 72 Year
  Sex: Female

DRUGS (11)
  1. PROMACTA [Suspect]
     Indication: IDIOPATHIC THROMBOCYTOPENIC PURPURA
     Dosage: 50MG PER DAY
     Route: 048
     Dates: start: 20110301
  2. PRAZOSIN [Suspect]
  3. NEXIUM [Concomitant]
  4. SIMVASTATIN [Concomitant]
  5. MICARDIS [Concomitant]
  6. ASACOL [Concomitant]
  7. SINGULAIR [Concomitant]
  8. HYDROCHLOROTHIAZIDE [Concomitant]
  9. INSULIN [Concomitant]
  10. CLARINEX [Concomitant]
  11. FLECAINIDE [Concomitant]

REACTIONS (2)
  - Platelet count decreased [Unknown]
  - Drug interaction [Unknown]
